FAERS Safety Report 7612013-7 (Version None)
Quarter: 2011Q3

REPORT INFORMATION
  Report Type: 
  Country: None (occurrence: None)
  Receive Date: 20110715
  Receipt Date: 20110708
  Transmission Date: 20111222
  Serious: Yes (Hospitalization)
  Sender: FDA-Public Use
  Company Number: US-US-EMD SERONO, INC.-7070006

PATIENT
  Sex: Male

DRUGS (3)
  1. EFFEXOR [Concomitant]
     Indication: DEPRESSION
     Dates: start: 20080101
  2. REBIF [Suspect]
     Indication: MULTIPLE SCLEROSIS
     Route: 058
     Dates: start: 20110520
  3. REBIF [Suspect]
     Route: 058
     Dates: end: 20110601

REACTIONS (2)
  - SELF-INJURIOUS IDEATION [None]
  - DEPRESSION [None]
